FAERS Safety Report 8182344-3 (Version None)
Quarter: 2012Q1

REPORT INFORMATION
  Report Type: 
  Country: None (occurrence: None)
  Receive Date: 20120302
  Receipt Date: 20120229
  Transmission Date: 20120608
  Serious: Yes (Death, Life-Threatening, Hospitalization, Other)
  Sender: FDA-Public Use
  Company Number: PHHY2010CA75876

PATIENT
  Sex: Male

DRUGS (4)
  1. SANDOSTATIN LAR [Suspect]
     Indication: ACROMEGALY
     Dosage: 10 MG, EVERY 6 WEEK
     Route: 030
     Dates: start: 20060420
  2. CHEMOTHERAPEUTICS [Concomitant]
     Dates: start: 20110711
  3. SANDOSTATIN LAR [Suspect]
     Dosage: 10 MG EVERY 4 WEEKS
     Route: 030
     Dates: end: 20120104
  4. MORPHINE [Concomitant]

REACTIONS (19)
  - GASTRIC CANCER [None]
  - ABDOMINAL PAIN UPPER [None]
  - FAECALOMA [None]
  - ASTHENIA [None]
  - DYSPHAGIA [None]
  - BACK PAIN [None]
  - MALAISE [None]
  - FATIGUE [None]
  - HAEMOGLOBIN DECREASED [None]
  - CHOLELITHIASIS [None]
  - GASTROOESOPHAGEAL REFLUX DISEASE [None]
  - METASTASES TO LIVER [None]
  - BILIARY COLIC [None]
  - OESOPHAGEAL ADENOCARCINOMA [None]
  - GASTROINTESTINAL HAEMORRHAGE [None]
  - GASTRIC DISORDER [None]
  - LYMPHADENOPATHY [None]
  - TERMINAL STATE [None]
  - EXERCISE TOLERANCE DECREASED [None]
